FAERS Safety Report 8501381-X (Version None)
Quarter: 2012Q3

REPORT INFORMATION
  Report Type: 
  Country: None (occurrence: None)
  Receive Date: 20120710
  Receipt Date: 20120705
  Transmission Date: 20120928
  Serious: Yes (Other)
  Sender: FDA-Public Use
  Company Number: US-PFIZER INC-2012161683

PATIENT
  Sex: Female
  Weight: 47.619 kg

DRUGS (3)
  1. DILANTIN [Suspect]
     Indication: CONVULSION
     Dosage: TWO 100MG, 2X/DAY
     Route: 048
  2. DILANTIN [Suspect]
     Dosage: UNK
  3. DILANTIN [Suspect]
     Dosage: 200MG, 2X/DAY
     Route: 048

REACTIONS (9)
  - MUSCLE ATROPHY [None]
  - THERMAL BURN [None]
  - THROAT IRRITATION [None]
  - PRODUCT TASTE ABNORMAL [None]
  - WEIGHT INCREASED [None]
  - DYSPHAGIA [None]
  - EATING DISORDER [None]
  - TONSIL CANCER [None]
  - HAEMORRHAGE [None]
